FAERS Safety Report 16759002 (Version 2)
Quarter: 2019Q3

REPORT INFORMATION
  Report Type: Spontaneous
  Country: CL (occurrence: CL)
  Receive Date: 20190830
  Receipt Date: 20190902
  Transmission Date: 20191005
  Serious: Yes (Death, Hospitalization)
  Sender: FDA-Public Use
  Company Number: PHHY2019CL200510

PATIENT
  Age: 39 Year
  Sex: Female

DRUGS (4)
  1. CEFTRIAXONE. [Concomitant]
     Active Substance: CEFTRIAXONE
     Indication: EVIDENCE BASED TREATMENT
     Route: 065
  2. LEVOFLOXACIN. [Concomitant]
     Active Substance: LEVOFLOXACIN
     Indication: EVIDENCE BASED TREATMENT
     Route: 065
  3. OSELTAMIVIR [Concomitant]
     Active Substance: OSELTAMIVIR
     Indication: EVIDENCE BASED TREATMENT
  4. METHYLPREDNISOLONE. [Suspect]
     Active Substance: METHYLPREDNISOLONE
     Indication: PULMONARY ALVEOLAR HAEMORRHAGE
     Dosage: 1 G, QD
     Route: 065

REACTIONS (19)
  - Bronchopleural fistula [Unknown]
  - Enterocolitis haemorrhagic [Fatal]
  - Anaemia [Unknown]
  - Pneumothorax [Unknown]
  - Pneumonia pseudomonal [Unknown]
  - Lymphopenia [Unknown]
  - Diarrhoea haemorrhagic [Fatal]
  - Product use in unapproved indication [Unknown]
  - Disseminated intravascular coagulation [Unknown]
  - Enterocolitis viral [Fatal]
  - Diarrhoea [Fatal]
  - Haematochezia [Fatal]
  - Adenovirus infection [Fatal]
  - Bacteraemia [Unknown]
  - Treatment failure [Unknown]
  - Septic shock [Unknown]
  - Gastrointestinal haemorrhage [Fatal]
  - Colitis [Fatal]
  - Acute kidney injury [Fatal]
